FAERS Safety Report 25512914 (Version 1)
Quarter: 2025Q3

REPORT INFORMATION
  Report Type: Report from Study
  Country: EG (occurrence: EG)
  Receive Date: 20250703
  Receipt Date: 20250703
  Transmission Date: 20251021
  Serious: Yes (Other)
  Sender: ABBVIE
  Company Number: EG-ABBVIE-6352304

PATIENT
  Age: 69 Year
  Sex: Female

DRUGS (3)
  1. HUMIRA [Suspect]
     Active Substance: ADALIMUMAB
     Indication: Uveitis
     Dosage: 1 SYRINGE?FORM STRENGTH: 40 MILLIGRAM
     Route: 058
     Dates: start: 20240518, end: 202506
  2. HUMIRA [Suspect]
     Active Substance: ADALIMUMAB
     Dosage: 1 SYRINGE?FORM STRENGTH: 40 MILLIGRAM
     Route: 058
     Dates: start: 20250614
  3. CORTISONE [Concomitant]
     Active Substance: CORTISONE
     Indication: Product used for unknown indication
     Dates: start: 202504

REACTIONS (5)
  - Macular oedema [Not Recovered/Not Resolved]
  - Product administration error [Not Recovered/Not Resolved]
  - Disturbance in attention [Not Recovered/Not Resolved]
  - Head discomfort [Not Recovered/Not Resolved]
  - Eye inflammation [Not Recovered/Not Resolved]

NARRATIVE: CASE EVENT DATE: 20250628
